FAERS Safety Report 23210442 (Version 1)
Quarter: 2023Q4

REPORT INFORMATION
  Report Type: Spontaneous
  Country: GB (occurrence: GB)
  Receive Date: 20231121
  Receipt Date: 20231121
  Transmission Date: 20240110
  Serious: Yes (Hospitalization, Disabling, Other)
  Sender: FDA-Public Use
  Company Number: None

PATIENT
  Sex: Male

DRUGS (2)
  1. CIPROFLOXACIN [Suspect]
     Active Substance: CIPROFLOXACIN
  2. FEBUXOSTAT [Concomitant]
     Active Substance: FEBUXOSTAT

REACTIONS (2)
  - Chronic fatigue syndrome [Not Recovered/Not Resolved]
  - Infection [None]

NARRATIVE: CASE EVENT DATE: 20181001
